FAERS Safety Report 5425780-8 (Version None)
Quarter: 2007Q3

REPORT INFORMATION
  Report Type: 
  Country: None (occurrence: None)
  Receive Date: 20070825
  Receipt Date: 20070621
  Transmission Date: 20080115
  Serious: Yes (Life-Threatening, Hospitalization, Disabling)
  Sender: FDA-Public Use
  Company Number: AU-MERCK-0703AUS00012

PATIENT
  Age: 66 Year
  Sex: Male
  Weight: 84 kg

DRUGS (5)
  1. PROSCAR [Suspect]
     Indication: PROSTATE EXAMINATION ABNORMAL
     Route: 048
     Dates: start: 20070125, end: 20070130
  2. PROSCAR [Suspect]
     Route: 048
     Dates: start: 20070103, end: 20070101
  3. FELODIPINE [Concomitant]
     Indication: PROSTATE CANCER
     Route: 065
  4. FELODIPINE [Concomitant]
     Route: 065
  5. ATORVASTATIN CALCIUM [Concomitant]
     Route: 065

REACTIONS (5)
  - ASTHMA [None]
  - DYSPNOEA [None]
  - INFLUENZA LIKE ILLNESS [None]
  - PYREXIA [None]
  - URTICARIA [None]
